FAERS Safety Report 4597383-9 (Version None)
Quarter: 2005Q1

REPORT INFORMATION
  Report Type: 
  Country: None (occurrence: None)
  Receive Date: 20050303
  Receipt Date: 20041101
  Transmission Date: 20050727
  Serious: No
  Sender: FDA-Public Use
  Company Number: US-GLAXOSMITHKLINE-A0532059A

PATIENT
  Age: 41 Year
  Sex: Male
  Weight: 88.6 kg

DRUGS (3)
  1. REQUIP [Suspect]
     Indication: ILL-DEFINED DISORDER
     Dosage: .25MG PER DAY
     Route: 048
     Dates: start: 20041001
  2. PAXIL [Concomitant]
     Indication: ANXIETY
     Dosage: 20MG PER DAY
     Route: 048
     Dates: start: 20040901
  3. DEPAKOTE [Concomitant]
     Route: 048

REACTIONS (2)
  - ARTHRALGIA [None]
  - RASH [None]
